FAERS Safety Report 24674958 (Version 1)
Quarter: 2024Q4

REPORT INFORMATION
  Report Type: Spontaneous
  Country: CA (occurrence: CA)
  Receive Date: 20241128
  Receipt Date: 20241128
  Transmission Date: 20250114
  Serious: Yes (Other)
  Sender: CATALYST PHARMA
  Company Number: CA-CATALYSTPHARMACEUTICALPARTNERS-CA-CATA-24-01396

PATIENT
  Sex: Female

DRUGS (3)
  1. FYCOMPA [Suspect]
     Active Substance: PERAMPANEL
     Indication: Myoclonus
     Dosage: DOSE AND FREQUENCY UNKNOWN
     Route: 048
  2. CLONAZEPAM [Suspect]
     Active Substance: CLONAZEPAM
     Indication: Myoclonus
     Dosage: DOSE AND FREQUENCY UNKNOWN
     Route: 048
  3. LEVETIRACETAM [Suspect]
     Active Substance: LEVETIRACETAM
     Indication: Myoclonus
     Dosage: DOSE AND FREQUENCY UNKNOWN
     Route: 065

REACTIONS (2)
  - Therapeutic product ineffective [Unknown]
  - Off label use [Unknown]
